FAERS Safety Report 11638052 (Version 1)
Quarter: 2015Q4

REPORT INFORMATION
  Report Type: Spontaneous
  Country: US (occurrence: US)
  Receive Date: 20151016
  Receipt Date: 20151016
  Transmission Date: 20160304
  Serious: No
  Sender: FDA-Public Use
  Company Number: US-PFIZER INC-2015345042

PATIENT
  Age: 55 Year
  Sex: Female
  Weight: 54 kg

DRUGS (2)
  1. PREDNISONE. [Concomitant]
     Active Substance: PREDNISONE
     Indication: SEPSIS
     Dosage: 30 MG, DAILY TABLET BY MOUTH
     Route: 048
     Dates: start: 201507
  2. CHANTIX [Suspect]
     Active Substance: VARENICLINE TARTRATE
     Indication: SMOKING CESSATION THERAPY
     Dosage: 0.5 MG, 1X/DAY TABLET EVERY MORNING
     Route: 048
     Dates: start: 201510

REACTIONS (5)
  - Malaise [Unknown]
  - Crying [Not Recovered/Not Resolved]
  - Drug prescribing error [Not Recovered/Not Resolved]
  - Drug ineffective [Unknown]
  - Intentional product use issue [Not Recovered/Not Resolved]
